FAERS Safety Report 6199919-3 (Version None)
Quarter: 2009Q2

REPORT INFORMATION
  Report Type: 
  Country: None (occurrence: None)
  Receive Date: 20090522
  Receipt Date: 20090513
  Transmission Date: 20091009
  Serious: Yes (Hospitalization)
  Sender: FDA-Public Use
  Company Number: US-BAXTER-2009BH008599

PATIENT
  Age: 30 Year
  Sex: Female
  Weight: 102 kg

DRUGS (2)
  1. TISSEEL VH/SD KIT LYOPHILIZED [Suspect]
     Indication: SURGERY
     Route: 065
     Dates: start: 20090424, end: 20090424
  2. TISSEEL VH/SD KIT LYOPHILIZED [Suspect]
     Indication: INTRACRANIAL HYPOTENSION
     Route: 065
     Dates: start: 20090424, end: 20090424

REACTIONS (1)
  - PSEUDOMENINGOCELE [None]
